FAERS Safety Report 23595523 (Version 1)
Quarter: 2024Q1

REPORT INFORMATION
  Report Type: Spontaneous
  Country: US (occurrence: None)
  Receive Date: 20240304
  Receipt Date: 20240304
  Transmission Date: 20240409
  Serious: Yes (Hospitalization)
  Sender: FDA-Public Use
  Company Number: None

PATIENT
  Age: 65 Year
  Sex: Male

DRUGS (12)
  1. AMBRISENTAN [Suspect]
     Active Substance: AMBRISENTAN
     Indication: Pulmonary hypertension
     Dosage: FREQUENCY : DAILY;?
     Route: 048
     Dates: start: 20231014
  2. SPIRONOLACTONE [Concomitant]
  3. MAGNESIUM [Concomitant]
  4. UPTRAVI [Concomitant]
     Active Substance: SELEXIPAG
  5. POTASSIUM [Concomitant]
  6. TORSEMIDE [Concomitant]
     Active Substance: TORSEMIDE
  7. FAMOTIDINE [Concomitant]
     Active Substance: FAMOTIDINE
  8. HYDROCODONE [Concomitant]
     Active Substance: HYDROCODONE
  9. ELIQUIS [Concomitant]
     Active Substance: APIXABAN
  10. SILDENAFIL [Concomitant]
     Active Substance: SILDENAFIL
  11. DIGOXIN [Concomitant]
  12. VITAMIN D [Concomitant]
     Active Substance: VITAMIN D NOS

REACTIONS (1)
  - Hospitalisation [None]
